FAERS Safety Report 16700914 (Version 1)
Quarter: 2019Q3

REPORT INFORMATION
  Report Type: Spontaneous
  Country: US (occurrence: PR)
  Receive Date: 20190814
  Receipt Date: 20190814
  Transmission Date: 20191004
  Serious: No
  Sender: FDA-Public Use
  Company Number: US-BRISTOL-MYERS SQUIBB COMPANY-BMS-2019-080064

PATIENT
  Age: 55 Year
  Sex: Female

DRUGS (1)
  1. ORENCIA [Suspect]
     Active Substance: ABATACEPT
     Indication: RHEUMATOID ARTHRITIS
     Dosage: 125 MILLIGRAM
     Route: 058
     Dates: start: 20190812

REACTIONS (2)
  - Device malfunction [Unknown]
  - Accidental exposure to product [Unknown]

NARRATIVE: CASE EVENT DATE: 20190812
